FAERS Safety Report 25660614 (Version 1)
Quarter: 2025Q3

REPORT INFORMATION
  Report Type: Spontaneous
  Country: US (occurrence: US)
  Receive Date: 20250808
  Receipt Date: 20250808
  Transmission Date: 20251020
  Serious: No
  Sender: INSUD PHARMA
  Company Number: US-INSUD PHARMA-2508US06329

PATIENT

DRUGS (1)
  1. PROGESTERONE [Suspect]
     Active Substance: PROGESTERONE
     Indication: Hormone replacement therapy
     Dosage: 100 MG, ONE PILL NIGHTLY
     Route: 048
     Dates: start: 20250617

REACTIONS (4)
  - Anxiety [Not Recovered/Not Resolved]
  - Night sweats [Not Recovered/Not Resolved]
  - Product use in unapproved indication [Unknown]
  - Product quality issue [Unknown]

NARRATIVE: CASE EVENT DATE: 20250601
